FAERS Safety Report 18594479 (Version 1)
Quarter: 2020Q4

REPORT INFORMATION
  Report Type: Spontaneous
  Country: US (occurrence: US)
  Receive Date: 20201208
  Receipt Date: 20201208
  Transmission Date: 20210114
  Serious: No
  Sender: FDA-Public Use
  Company Number: None

PATIENT
  Age: 40 Year
  Sex: Female

DRUGS (1)
  1. PEMAZYRE [Suspect]
     Active Substance: PEMIGATINIB
     Indication: BILE DUCT CANCER
     Route: 048

REACTIONS (5)
  - Constipation [None]
  - Tumour marker increased [None]
  - Dehydration [None]
  - Diarrhoea [None]
  - Blood glucose increased [None]

NARRATIVE: CASE EVENT DATE: 20201207
